FAERS Safety Report 20741105 (Version 1)
Quarter: 2022Q2

REPORT INFORMATION
  Report Type: Spontaneous
  Country: DE (occurrence: DE)
  Receive Date: 20220422
  Receipt Date: 20220422
  Transmission Date: 20220721
  Serious: Yes (Other)
  Sender: FDA-Public Use
  Company Number: DE-ABBVIE-22K-062-4357639-00

PATIENT
  Age: 70 Year
  Sex: Male

DRUGS (5)
  1. VENETOCLAX [Suspect]
     Active Substance: VENETOCLAX
     Indication: B-cell small lymphocytic lymphoma
     Route: 048
     Dates: start: 2019, end: 202009
  2. IBRUTINIB [Suspect]
     Active Substance: IBRUTINIB
     Indication: Product used for unknown indication
     Route: 048
     Dates: start: 202009
  3. RITUXIMAB [Concomitant]
     Active Substance: RITUXIMAB
     Indication: Product used for unknown indication
     Dosage: 6 CYCLES COMBINED WITH BENDAMUSTIN
     Dates: start: 201804, end: 201810
  4. RITUXIMAB [Concomitant]
     Active Substance: RITUXIMAB
     Dosage: COMBINED WITH VENETOCLAX
     Dates: start: 201909
  5. RITUXIMAB [Concomitant]
     Active Substance: RITUXIMAB
     Dosage: COMBINED WITH VENETOCLAX
     Dates: start: 201912

REACTIONS (5)
  - Lymphoma [Unknown]
  - Lymphoma [Unknown]
  - B-cell small lymphocytic lymphoma recurrent [Unknown]
  - Oedema peripheral [Unknown]
  - Neoplasm progression [Unknown]

NARRATIVE: CASE EVENT DATE: 20190701
